FAERS Safety Report 8918962 (Version 1)
Quarter: 2012Q4

REPORT INFORMATION
  Report Type: 
  Country: US (occurrence: US)
  Receive Date: 20121121
  Receipt Date: 20121121
  Transmission Date: 20130627
  Serious: No
  Sender: FDA-Public Use
  Company Number: US-ASTRAZENECA-2012SE23088

PATIENT
  Age: 55 Year
  Sex: Male
  Weight: 96.6 kg

DRUGS (5)
  1. NEXIUM [Suspect]
     Indication: GASTROOESOPHAGEAL REFLUX DISEASE
     Route: 048
     Dates: start: 201203
  2. LISINOPRIL [Suspect]
     Indication: HYPERTENSION
     Route: 048
  3. ADVIL [Concomitant]
     Indication: PYREXIA
  4. ADVIL [Concomitant]
     Indication: INFLUENZA
  5. HIV MEDICATION [Concomitant]
     Indication: HIV INFECTION

REACTIONS (5)
  - Influenza [Unknown]
  - Hyperchlorhydria [Unknown]
  - Gastrooesophageal reflux disease [Unknown]
  - Nasopharyngitis [Unknown]
  - Pyrexia [Unknown]
